FAERS Safety Report 10959800 (Version 1)
Quarter: 2015Q1

REPORT INFORMATION
  Report Type: Spontaneous
  Country: US (occurrence: None)
  Receive Date: 20150325
  Receipt Date: 20150325
  Transmission Date: 20150721
  Serious: Yes (Hospitalization)
  Sender: FDA-Public Use
  Company Number: US-001783

PATIENT
  Age: 32 Year
  Sex: Male

DRUGS (2)
  1. GATTEX [Suspect]
     Active Substance: TEDUGLUTIDE\WATER
     Indication: SHORT-BOWEL SYNDROME
     Dosage: DF
     Route: 058
     Dates: start: 20140925, end: 20150305
  2. SOLUTIONS FOR PARENTERAL NUTRITION (UNKNOWN UNTIL UNKNOWN) [Concomitant]

REACTIONS (1)
  - Abscess [None]

NARRATIVE: CASE EVENT DATE: 20150305
